FAERS Safety Report 6140265-1 (Version None)
Quarter: 2009Q2

REPORT INFORMATION
  Report Type: 
  Country: None (occurrence: None)
  Receive Date: 20090401
  Receipt Date: 20081210
  Transmission Date: 20091009
  Serious: Yes (Death, Hospitalization)
  Sender: FDA-Public Use
  Company Number: DE-ASTRAZENECA-2009SE01315

PATIENT
  Age: 21887 Day
  Sex: Male

DRUGS (52)
  1. BELOC-ZOK [Suspect]
     Indication: HYPERTENSION
     Route: 048
     Dates: start: 20020704
  2. PULMICORT-100 [Suspect]
     Indication: CHRONIC OBSTRUCTIVE PULMONARY DISEASE
     Route: 055
     Dates: start: 20060217
  3. AMPICILLIN AND SULBACTAM [Suspect]
     Indication: PNEUMONIA
     Route: 048
     Dates: start: 20060217, end: 20060223
  4. PLANUM [Suspect]
     Indication: SLEEP DISORDER
     Route: 048
     Dates: start: 20060218, end: 20060219
  5. UNAT [Suspect]
     Indication: HYPERTENSION
     Route: 048
     Dates: start: 20060202, end: 20060220
  6. ALLOPURINOL [Suspect]
     Indication: HYPERURICAEMIA
     Route: 048
     Dates: start: 20040511, end: 20060224
  7. VIRAMUNE [Suspect]
     Indication: HIV INFECTION
     Route: 048
     Dates: start: 20051129, end: 20060303
  8. RANTUDIL [Suspect]
     Indication: PAIN
     Route: 048
     Dates: start: 20051129, end: 20060210
  9. RANTUDIL [Suspect]
     Route: 048
     Dates: start: 20060214
  10. ACTRAPID [Suspect]
     Indication: HYPOGLYCAEMIA
     Route: 058
     Dates: start: 20060202
  11. FRAXIPARIN [Suspect]
     Indication: THROMBOSIS PROPHYLAXIS
     Route: 058
     Dates: start: 20060203, end: 20060225
  12. DELIX [Suspect]
     Indication: HYPERTENSION
     Route: 048
     Dates: start: 20020704
  13. DELIX [Suspect]
     Route: 048
  14. PANTOZOL [Suspect]
     Indication: PROPHYLAXIS AGAINST GASTROINTESTINAL ULCER
     Route: 048
     Dates: start: 20040511
  15. COMBIVIR [Suspect]
     Indication: HIV INFECTION
     Route: 048
     Dates: start: 20051129
  16. MUCOSOLVAN [Suspect]
     Indication: COUGH
     Route: 055
     Dates: start: 20060208, end: 20060225
  17. MUCOSOLVAN [Suspect]
     Route: 055
     Dates: start: 20060219, end: 20060219
  18. DERMATOP [Suspect]
     Indication: PSORIASIS
     Route: 061
     Dates: start: 20060208, end: 20080227
  19. SILKIS [Suspect]
     Indication: PSORIASIS
     Route: 061
     Dates: start: 20060208, end: 20060227
  20. LANITOP [Suspect]
     Indication: CARDIAC FAILURE
     Route: 048
     Dates: start: 20060211
  21. NOVALGIN [Suspect]
     Indication: PAIN
     Route: 048
     Dates: start: 20060213, end: 20060216
  22. NOVALGIN [Suspect]
     Indication: PYREXIA
     Route: 048
     Dates: start: 20060213, end: 20060216
  23. NOVALGIN [Suspect]
     Route: 048
     Dates: start: 20060219, end: 20060219
  24. NOVALGIN [Suspect]
     Route: 048
     Dates: start: 20060219, end: 20060219
  25. NOVALGIN [Suspect]
     Route: 043
     Dates: start: 20060223, end: 20060223
  26. NOVALGIN [Suspect]
     Route: 043
     Dates: start: 20060223, end: 20060223
  27. CREON [Suspect]
     Indication: PANCREATITIS CHRONIC
     Route: 048
     Dates: start: 20060213
  28. IMODIUM [Suspect]
     Indication: DIARRHOEA
     Route: 048
     Dates: start: 20060214, end: 20060217
  29. POTASSIUM CHLORIDE [Suspect]
     Indication: HYPOKALAEMIA
     Route: 042
     Dates: start: 20060214, end: 20060214
  30. POTASSIUM CHLORIDE [Suspect]
     Route: 042
     Dates: start: 20060217, end: 20060217
  31. POTASSIUM CHLORIDE [Suspect]
     Route: 042
     Dates: start: 20060220, end: 20060220
  32. MUCOFALK [Suspect]
     Indication: DIARRHOEA
     Route: 048
     Dates: start: 20060214, end: 20060303
  33. SODIUM CHLORIDE [Suspect]
     Indication: FLUID REPLACEMENT
     Route: 042
     Dates: start: 20060214
  34. ACETYLCYSTEINE [Suspect]
     Indication: PRODUCTIVE COUGH
     Route: 042
     Dates: start: 20060216, end: 20060216
  35. ACETYLCYSTEINE [Suspect]
     Route: 048
     Dates: start: 20060217, end: 20060219
  36. ACETYLCYSTEINE [Suspect]
     Route: 042
     Dates: start: 20060220, end: 20060220
  37. ACETYLCYSTEINE [Suspect]
     Route: 048
     Dates: start: 20060221, end: 20060301
  38. KLACID [Suspect]
     Indication: PNEUMONIA
     Route: 048
     Dates: start: 20060216, end: 20060224
  39. GELOMYRTOL [Suspect]
     Indication: CHRONIC SINUSITIS
     Route: 048
     Dates: start: 20060216, end: 20060301
  40. OTRIVEN [Suspect]
     Indication: CHRONIC SINUSITIS
     Route: 065
     Dates: start: 20060216
  41. BRONCHICUM NATTERMAN ELIXIR [Suspect]
     Indication: COUGH
     Route: 048
     Dates: start: 20060217, end: 20060217
  42. BRONCHICUM NATTERMAN ELIXIR [Suspect]
     Route: 048
     Dates: start: 20060221, end: 20060221
  43. CODEINE SUL TAB [Suspect]
     Indication: COUGH
     Route: 048
     Dates: start: 20060217, end: 20060217
  44. LASIX [Suspect]
     Indication: POLYURIA
     Route: 042
     Dates: start: 20060217, end: 20060218
  45. LASIX [Suspect]
     Route: 042
     Dates: start: 20060220, end: 20060302
  46. KALIUM [Suspect]
     Indication: HYPOKALAEMIA
     Route: 048
     Dates: start: 20060221, end: 20060221
  47. KALIUM [Suspect]
     Route: 048
     Dates: start: 20060223, end: 20060301
  48. PREDNISOLONE [Suspect]
     Indication: CHRONIC OBSTRUCTIVE PULMONARY DISEASE
     Route: 042
     Dates: start: 20060221, end: 20060221
  49. PREDNISOLONE [Suspect]
     Indication: SKIN DISORDER
     Route: 042
     Dates: start: 20060221, end: 20060221
  50. PARACODIN BITARTRATE TAB [Suspect]
     Indication: COUGH
     Route: 048
     Dates: start: 20060222, end: 20060222
  51. ALNA [Suspect]
     Indication: BENIGN PROSTATIC HYPERPLASIA
     Route: 048
     Dates: start: 20060222
  52. ELECTROLYTE SOLUTIONS [Concomitant]
     Indication: COLONOSCOPY
     Route: 065
     Dates: start: 20060208, end: 20060208

REACTIONS (2)
  - ASPHYXIA [None]
  - TOXIC EPIDERMAL NECROLYSIS [None]
